FAERS Safety Report 8832633 (Version 2)
Quarter: 2012Q4

REPORT INFORMATION
  Report Type: 
  Country: US (occurrence: US)
  Receive Date: 20121010
  Receipt Date: 20121023
  Transmission Date: 20130627
  Serious: Yes (Hospitalization)
  Sender: FDA-Public Use
  Company Number: US-MERCK-1210USA003490

PATIENT

DRUGS (1)
  1. SAPHRIS [Suspect]
     Dosage: UNK
     Route: 060
     Dates: start: 201209

REACTIONS (1)
  - Akathisia [Recovering/Resolving]
